FAERS Safety Report 5669245-7 (Version None)
Quarter: 2008Q1

REPORT INFORMATION
  Report Type: 
  Country: None (occurrence: None)
  Receive Date: 20080313
  Receipt Date: 20080313
  Transmission Date: 20080703
  Serious: Yes (Hospitalization)
  Sender: FDA-Public Use
  Company Number: None

PATIENT
  Sex: Female
  Weight: 63.5036 kg

DRUGS (1)
  1. FLUOXETINE [Suspect]
     Indication: MIGRAINE
     Dosage: 20 MG 1 A DAY PO
     Route: 048
     Dates: start: 20080205, end: 20080226

REACTIONS (1)
  - CONVULSION [None]
